FAERS Safety Report 18151739 (Version 6)
Quarter: 2021Q4

REPORT INFORMATION
  Report Type: Report from Study
  Country: FI (occurrence: FI)
  Receive Date: 20200814
  Receipt Date: 20211209
  Transmission Date: 20220303
  Serious: Yes (Hospitalization)
  Sender: FDA-Public Use
  Company Number: FI-PFIZER INC-2020300029

PATIENT
  Age: 79 Year
  Sex: Male

DRUGS (10)
  1. ENZALUTAMIDE [Suspect]
     Active Substance: ENZALUTAMIDE
     Indication: Hormone-refractory prostate cancer
     Route: 048
     Dates: start: 20200122, end: 20200805
  2. WARFARIN SODIUM [Concomitant]
     Active Substance: WARFARIN SODIUM
     Indication: Atrial fibrillation
     Dosage: UNK UNK, UNKNOWN FREQ.
     Route: 065
     Dates: start: 2012
  3. ENALAPRIL [Concomitant]
     Active Substance: ENALAPRIL
     Indication: Hypertension
     Dosage: UNK UNK, UNKNOWN FREQ.
     Route: 065
     Dates: start: 2012
  4. AMLODIPINE [Concomitant]
     Active Substance: AMLODIPINE BESYLATE
     Indication: Hypertension
     Dosage: UNK UNK, UNKNOWN FREQ.
     Route: 065
     Dates: start: 2012
  5. SIMVASTATIN [Concomitant]
     Active Substance: SIMVASTATIN
     Indication: Hypercholesterolaemia
     Dosage: UNK UNK, UNKNOWN FREQ.
     Route: 065
     Dates: start: 2012
  6. TAMBOCOR [Concomitant]
     Active Substance: FLECAINIDE ACETATE
     Indication: Atrial fibrillation
     Dosage: UNK UNK, UNKNOWN FREQ. (RETARD TABLET)
     Route: 065
     Dates: start: 2012
  7. BIMATOPROST\TIMOLOL [Concomitant]
     Active Substance: BIMATOPROST\TIMOLOL
     Indication: Glaucoma
     Dosage: UNK UNK, UNKNOWN FREQ.
     Route: 065
     Dates: start: 2017
  8. ENANTONE MONATS-DEPOT [Concomitant]
     Active Substance: LEUPROLIDE ACETATE
     Indication: Prostate cancer
     Dosage: UNK UNK, UNKNOWN FREQ.
     Route: 065
     Dates: start: 201907
  9. BISOPROLOL [Concomitant]
     Active Substance: BISOPROLOL
     Indication: Hypertension
     Dosage: UNK UNK, UNKNOWN FREQ.
     Route: 065
     Dates: start: 2012
  10. CALCIUM\CHOLECALCIFEROL [Concomitant]
     Active Substance: CALCIUM\CHOLECALCIFEROL
     Indication: Prostate cancer
     Dosage: UNK UNK, UNKNOWN FREQ.
     Route: 065
     Dates: start: 201907

REACTIONS (2)
  - Platelet count decreased [Recovered/Resolved]
  - Aspartate aminotransferase increased [Recovered/Resolved]

NARRATIVE: CASE EVENT DATE: 20200805
